FAERS Safety Report 14421131 (Version 1)
Quarter: 2018Q1

REPORT INFORMATION
  Report Type: Spontaneous
  Country: US (occurrence: US)
  Receive Date: 20180122
  Receipt Date: 20180122
  Transmission Date: 20180509
  Serious: No
  Sender: FDA-Public Use
  Company Number: US-NEUROCRINE BIOSCIENCES INC.-2018NBI00070

PATIENT
  Sex: Female
  Weight: 51.76 kg

DRUGS (10)
  1. NORTRIPTYLINE [Concomitant]
     Active Substance: NORTRIPTYLINE
  2. PROTONIX [Concomitant]
     Active Substance: PANTOPRAZOLE SODIUM
  3. ZYPREXA [Concomitant]
     Active Substance: OLANZAPINE
  4. CLONAZEPAM. [Concomitant]
     Active Substance: CLONAZEPAM
  5. BENZTROPINE. [Concomitant]
     Active Substance: BENZTROPINE
  6. INGREZZA [Suspect]
     Active Substance: VALBENAZINE
     Indication: TARDIVE DYSKINESIA
     Route: 048
     Dates: start: 201710, end: 20171219
  7. COLACE [Concomitant]
     Active Substance: DOCUSATE SODIUM
  8. TEGRETOL [Concomitant]
     Active Substance: CARBAMAZEPINE
  9. METOPROLOL. [Concomitant]
     Active Substance: METOPROLOL
  10. PRAVASTATIN. [Concomitant]
     Active Substance: PRAVASTATIN

REACTIONS (10)
  - Confusional state [Unknown]
  - Somnolence [Unknown]
  - Drooling [Unknown]
  - Dry mouth [Unknown]
  - Headache [Unknown]
  - Restlessness [Unknown]
  - Tremor [Unknown]
  - Insomnia [Unknown]
  - Balance disorder [Unknown]
  - Cognitive disorder [Unknown]
